FAERS Safety Report 7122749-2 (Version None)
Quarter: 2010Q4

REPORT INFORMATION
  Report Type: 
  Country: None (occurrence: None)
  Receive Date: 20101124
  Receipt Date: 20101115
  Transmission Date: 20110411
  Serious: Yes (Other)
  Sender: FDA-Public Use
  Company Number: US-AMGEN-USASP2010005165

PATIENT

DRUGS (2)
  1. ENBREL [Suspect]
     Indication: PSORIASIS
     Dates: start: 20101111
  2. ENBREL [Suspect]
     Dates: start: 20101111

REACTIONS (5)
  - EYE SWELLING [None]
  - ODYNOPHAGIA [None]
  - PRURITUS [None]
  - PRURITUS GENERALISED [None]
  - URTICARIA [None]
